FAERS Safety Report 5304479-2 (Version None)
Quarter: 2007Q2

REPORT INFORMATION
  Report Type: 
  Country: None (occurrence: None)
  Receive Date: 20070417
  Receipt Date: 20070417
  Transmission Date: 20071010
  Serious: Yes (Death)
  Sender: FDA-Public Use
  Company Number: None

PATIENT
  Age: 80 Year
  Sex: Female
  Weight: 82.5547 kg

DRUGS (9)
  1. LOVENOX [Suspect]
     Indication: DEEP VEIN THROMBOSIS
     Dosage: 80 MG SC Q 12 H
     Route: 058
     Dates: start: 20070325, end: 20070327
  2. PREVACID [Concomitant]
  3. ASPIRIN [Concomitant]
  4. TAMOXIFEN CITRATE [Concomitant]
  5. NPH [Concomitant]
  6. MIRAPEX [Concomitant]
  7. FUROSEMIDE [Concomitant]
  8. ALDACTONE [Concomitant]
  9. PREDNISONE [Concomitant]

REACTIONS (3)
  - HYPOTENSION [None]
  - LOSS OF CONSCIOUSNESS [None]
  - RETROPERITONEAL HAEMORRHAGE [None]
